FAERS Safety Report 8196983-7 (Version None)
Quarter: 2012Q1

REPORT INFORMATION
  Report Type: 
  Country: None (occurrence: None)
  Receive Date: 20120309
  Receipt Date: 20120302
  Transmission Date: 20120608
  Serious: Yes (Disabling, Other)
  Sender: FDA-Public Use
  Company Number: US-SANOFI-AVENTIS-2012SA014734

PATIENT
  Age: 82 Year
  Sex: Female

DRUGS (10)
  1. ANTIHYPERTENSIVES [Concomitant]
     Indication: BLOOD PRESSURE
  2. SYNTHROID [Concomitant]
  3. ASCORBIC ACID [Concomitant]
  4. GABAPENTIN [Concomitant]
  5. VITAMIN E [Concomitant]
  6. CALCIUM [Concomitant]
  7. ALLEGRA [Suspect]
  8. MULTI-VITAMINS [Concomitant]
  9. CORTISONE ACETATE [Suspect]
     Indication: BACK PAIN
     Dates: start: 20091117, end: 20091117
  10. FEXOFENADINE HYDROCHLORIDE [Suspect]

REACTIONS (8)
  - RETINAL DISORDER [None]
  - INCORRECT DOSE ADMINISTERED [None]
  - BLINDNESS [None]
  - CATARACT [None]
  - NERVE INJURY [None]
  - PARALYSIS [None]
  - BACK PAIN [None]
  - DISORIENTATION [None]
